FAERS Safety Report 10101525 (Version 4)
Quarter: 2014Q3

REPORT INFORMATION
  Report Type: Spontaneous
  Country: GB (occurrence: None)
  Receive Date: 20140422
  Receipt Date: 20140829
  Transmission Date: 20150326
  Serious: Yes (Other)
  Sender: FDA-Public Use
  Company Number: AUR-APL-2014-04640

PATIENT
  Age: 53 Year
  Sex: Male
  Weight: 133 kg

DRUGS (6)
  1. CIALIS [Concomitant]
     Active Substance: TADALAFIL
  2. DULOXETINE (DULOXETINE) (DULOXETINE) [Concomitant]
     Active Substance: DULOXETINE
  3. DAPAGLIFLOZIN [Suspect]
     Active Substance: DAPAGLIFLOZIN
     Indication: TYPE 2 DIABETES MELLITUS
     Route: 048
     Dates: start: 20130828
  4. RAMIPRIL (RAMIPRIL) [Suspect]
     Active Substance: RAMIPRIL
     Indication: MICROALBUMINURIA
     Route: 048
  5. RAMIPRIL. [Suspect]
     Active Substance: RAMIPRIL
     Indication: MICROALBUMINURIA
     Route: 048
     Dates: start: 20131007, end: 20140216
  6. LOPERAMIDE (LOPERAMIDE) [Concomitant]

REACTIONS (4)
  - Loss of consciousness [None]
  - Drug interaction [None]
  - Blood pressure decreased [None]
  - Joint injury [None]

NARRATIVE: CASE EVENT DATE: 20140219
